FAERS Safety Report 8543187-1 (Version None)
Quarter: 2012Q3

REPORT INFORMATION
  Report Type: 
  Country: None (occurrence: None)
  Receive Date: 20120727
  Receipt Date: 20120719
  Transmission Date: 20120928
  Serious: Yes (Other)
  Sender: FDA-Public Use
  Company Number: RU-JNJFOC-20120711874

PATIENT
  Sex: Female

DRUGS (8)
  1. CYCLOPHOSPHAMIDE [Suspect]
     Indication: HODGKIN'S DISEASE
     Route: 065
  2. VINCRISTINE [Suspect]
     Indication: HODGKIN'S DISEASE
     Route: 065
  3. BLEOMYCIN SULFATE [Suspect]
     Indication: HODGKIN'S DISEASE
     Route: 065
  4. PROCARBAZINE HYDROCHLORIDE [Suspect]
     Indication: HODGKIN'S DISEASE
     Route: 065
  5. CHEMORADIATION [Suspect]
     Indication: HODGKIN'S DISEASE
     Route: 065
  6. ETOPOSIDE [Suspect]
     Indication: HODGKIN'S DISEASE
     Route: 065
  7. DOXORUBICIN HYDROCHLORIDE [Suspect]
     Indication: HODGKIN'S DISEASE
     Route: 042
  8. PREDNISONE [Suspect]
     Indication: HODGKIN'S DISEASE
     Route: 065

REACTIONS (1)
  - OVARIAN CANCER [None]
